FAERS Safety Report 4348409-9 (Version None)
Quarter: 2004Q1

REPORT INFORMATION
  Report Type: 
  Country: None (occurrence: None)
  Receive Date: 20040325
  Receipt Date: 20040223
  Transmission Date: 20041129
  Serious: No
  Sender: FDA-Public Use
  Company Number: USA031049832

PATIENT
  Age: 72 Year
  Sex: Female
  Weight: 68 kg

DRUGS (7)
  1. FORTEO [Suspect]
     Indication: OSTEOPOROSIS
     Dosage: 20 UG DAY
     Dates: start: 20031001
  2. PEPCID AC [Concomitant]
  3. GAVISCON [Concomitant]
  4. DHEA [Concomitant]
  5. MICRO K EXTENCAPS (POTASSIUM CHLORIDE) [Concomitant]
  6. THYROID TAB [Concomitant]
  7. ENDURON(METHYCLOTHIAZIDE) [Concomitant]

REACTIONS (4)
  - DIZZINESS [None]
  - HEPATIC ENZYME INCREASED [None]
  - INCREASED APPETITE [None]
  - JOINT SWELLING [None]
